FAERS Safety Report 10170439 (Version 1)
Quarter: 2014Q2

REPORT INFORMATION
  Report Type: Spontaneous
  Country: CN (occurrence: CN)
  Receive Date: 20140513
  Receipt Date: 20140513
  Transmission Date: 20141212
  Serious: Yes (Other)
  Sender: FDA-Public Use
  Company Number: CN-BAXTER-2014BAX023328

PATIENT
  Age: 71 Year
  Sex: Male
  Weight: 54 kg

DRUGS (2)
  1. 0.9% SODIUM CHLORIDE INJECTION [Suspect]
     Indication: MEDICATION DILUTION
     Route: 041
     Dates: start: 20130726, end: 20130726
  2. JAVANICA OIL EMULSION INJECTION [Suspect]
     Indication: OESOPHAGEAL CARCINOMA
     Dosage: 3 VIALS
     Route: 041
     Dates: start: 20130726, end: 20130726

REACTIONS (6)
  - Chest discomfort [Unknown]
  - Chest pain [Unknown]
  - Discomfort [Unknown]
  - Infusion related reaction [Recovered/Resolved]
  - Chills [Unknown]
  - Pyrexia [Recovered/Resolved]
